FAERS Safety Report 24120788 (Version 1)
Quarter: 2024Q3

REPORT INFORMATION
  Report Type: Spontaneous
  Country: US (occurrence: US)
  Receive Date: 20240722
  Receipt Date: 20240722
  Transmission Date: 20241017
  Serious: Yes (Hospitalization, Other)
  Sender: APOTEX
  Company Number: US-APOTEX-2024AP008443

PATIENT
  Age: 42 Year
  Sex: Female

DRUGS (10)
  1. DULOXETINE [Interacting]
     Active Substance: DULOXETINE
     Indication: Psychotic disorder
     Dosage: 60 MILLIGRAM, BID
     Route: 065
  2. DULOXETINE [Interacting]
     Active Substance: DULOXETINE
     Dosage: 30 MILLIGRAM, BID
     Route: 065
  3. NORTRIPTYLINE [Interacting]
     Active Substance: NORTRIPTYLINE
     Indication: Psychotic disorder
     Dosage: 150 MILLIGRAM, QD
     Route: 065
  4. NORTRIPTYLINE [Interacting]
     Active Substance: NORTRIPTYLINE
     Dosage: 75 MILLIGRAM, QD
     Route: 065
  5. NORTRIPTYLINE [Interacting]
     Active Substance: NORTRIPTYLINE
     Dosage: 50 MILLIGRAM, QD
     Route: 065
  6. BUSPIRONE [Interacting]
     Active Substance: BUSPIRONE HYDROCHLORIDE
     Indication: Psychotic disorder
     Dosage: 5 MILLIGRAM, TID
     Route: 065
  7. BUSPIRONE [Interacting]
     Active Substance: BUSPIRONE HYDROCHLORIDE
     Indication: Anxiety
     Dosage: 5 MILLIGRAM, SINGLE
     Route: 065
  8. BUSPIRONE [Interacting]
     Active Substance: BUSPIRONE HYDROCHLORIDE
     Indication: Agitation
  9. METOCLOPRAMIDE [Interacting]
     Active Substance: METOCLOPRAMIDE
     Indication: Nausea
     Dosage: 10 MILLIGRAM, TID
     Route: 042
  10. METOCLOPRAMIDE [Interacting]
     Active Substance: METOCLOPRAMIDE
     Indication: Vomiting

REACTIONS (3)
  - Drug interaction [Recovered/Resolved]
  - Dystonia [Recovered/Resolved]
  - Serotonin syndrome [Recovered/Resolved]
